FAERS Safety Report 4493035-4 (Version None)
Quarter: 2004Q4

REPORT INFORMATION
  Report Type: 
  Country: None (occurrence: None)
  Receive Date: 20041101
  Receipt Date: 20041019
  Transmission Date: 20050328
  Serious: Yes (Death, Other)
  Sender: FDA-Public Use
  Company Number: 2004239729IE

PATIENT

DRUGS (1)
  1. CAMPTO (IRINOTECAN) SOLUTION, STERILE [Suspect]
     Indication: CARCINOMA

REACTIONS (1)
  - DIARRHOEA [None]
